FAERS Safety Report 9170372 (Version 1)
Quarter: 2013Q1

REPORT INFORMATION
  Report Type: Spontaneous
  Country: PH (occurrence: PH)
  Receive Date: 20130319
  Receipt Date: 20130319
  Transmission Date: 20140127
  Serious: Yes (Death)
  Sender: FDA-Public Use
  Company Number: PH-JNJFOC-20130306813

PATIENT
  Age: 5 Decade
  Sex: Male

DRUGS (1)
  1. ZYTIGA [Suspect]
     Indication: PROSTATE CANCER STAGE IV
     Dosage: 250 MG X 4 TABLETS
     Route: 048
     Dates: start: 20130310

REACTIONS (1)
  - Disease progression [Fatal]
